FAERS Safety Report 7370058-9 (Version None)
Quarter: 2011Q1

REPORT INFORMATION
  Report Type: 
  Country: None (occurrence: None)
  Receive Date: 20110323
  Receipt Date: 20110309
  Transmission Date: 20110831
  Serious: Yes (Hospitalization, Other)
  Sender: FDA-Public Use
  Company Number: PHHY2011JP05109

PATIENT
  Sex: Male
  Weight: 52 kg

DRUGS (5)
  1. CINAL [Concomitant]
     Indication: SCLERODERMA
     Dosage: 2 G, UNK
     Route: 048
     Dates: start: 20101125
  2. DIOVAN [Suspect]
     Indication: HYPERTENSION
     Dosage: 80 MG DAILY
     Route: 048
     Dates: start: 20101125, end: 20101224
  3. JUVELA NICOTINATE [Concomitant]
     Indication: SCLERODERMA
     Dosage: 200 MG, UNK
     Route: 048
     Dates: start: 20101125
  4. ALOSITOL [Concomitant]
     Indication: HYPERURICAEMIA
     Dosage: 200 MG, UNK
     Route: 048
  5. METHYCOBAL [Concomitant]
     Indication: SCLERODERMA
     Dosage: UNK UG, UNK
     Route: 048
     Dates: start: 20101125

REACTIONS (4)
  - URINE SODIUM DECREASED [None]
  - INAPPROPRIATE ANTIDIURETIC HORMONE SECRETION [None]
  - URINE OSMOLARITY INCREASED [None]
  - PYREXIA [None]
